FAERS Safety Report 7764617-9 (Version None)
Quarter: 2011Q3

REPORT INFORMATION
  Report Type: 
  Country: None (occurrence: None)
  Receive Date: 20110921
  Receipt Date: 20110912
  Transmission Date: 20111222
  Serious: Yes (Hospitalization, Other)
  Sender: FDA-Public Use
  Company Number: PHEH2011US03233

PATIENT
  Sex: Female

DRUGS (9)
  1. EXJADE [Suspect]
     Dosage: 500 MG, DAILY
     Route: 048
  2. LISINOPRIL [Concomitant]
     Indication: HYPERTENSION
     Dosage: 5 MG, DAILY
  3. EXJADE [Suspect]
     Dosage: 750 MG, DAILY
     Route: 048
  4. EXJADE [Suspect]
     Indication: CHELATION THERAPY
     Dosage: 1000 MG, QD
     Route: 048
  5. NORVASC [Concomitant]
  6. IBUPROFEN [Concomitant]
  7. TYLENOL-500 [Concomitant]
  8. LORTAB [Concomitant]
  9. MIRALAX [Concomitant]
     Indication: CONSTIPATION
     Dosage: 17 MG, PRN
     Route: 048

REACTIONS (30)
  - MENTAL IMPAIRMENT [None]
  - SOMNOLENCE [None]
  - BLOOD CREATININE INCREASED [None]
  - CONFUSIONAL STATE [None]
  - BLOOD POTASSIUM DECREASED [None]
  - VOMITING [None]
  - MALAISE [None]
  - ADRENAL DISORDER [None]
  - URINE KETONE BODY [None]
  - ACTIVITIES OF DAILY LIVING IMPAIRED [None]
  - GLIOSIS [None]
  - BACK PAIN [None]
  - HYPERTENSION [None]
  - HYPERAMMONAEMIA [None]
  - ACIDOSIS [None]
  - HYPOPHAGIA [None]
  - UNRESPONSIVE TO STIMULI [None]
  - BLOOD GLUCOSE DECREASED [None]
  - ENCEPHALOPATHY [None]
  - THALASSAEMIA BETA [None]
  - DEHYDRATION [None]
  - GALLBLADDER ENLARGEMENT [None]
  - URINE LACTIC ACID [None]
  - ASTHENIA [None]
  - RENAL DISORDER [None]
  - SEDATION [None]
  - PROTEINURIA [None]
  - SLEEP DISORDER [None]
  - BODY TEMPERATURE DECREASED [None]
  - LETHARGY [None]
